FAERS Safety Report 7402789-6 (Version None)
Quarter: 2011Q2

REPORT INFORMATION
  Report Type: 
  Country: None (occurrence: None)
  Receive Date: 20110408
  Receipt Date: 20110329
  Transmission Date: 20111010
  Serious: Yes (Other)
  Sender: FDA-Public Use
  Company Number: JP-MPIJNJ-2007_03663

PATIENT

DRUGS (4)
  1. VELCADE [Suspect]
     Dosage: 1.7 MG, UNK
     Route: 042
     Dates: start: 20071120, end: 20071130
  2. BAKTAR [Suspect]
     Indication: PROPHYLAXIS
     Dosage: 4.00 DF, UNK
     Route: 048
     Dates: start: 20071023, end: 20071109
  3. ITRIZOLE [Suspect]
     Indication: PROPHYLAXIS
     Dosage: 200.00 MG, UNK
     Route: 048
     Dates: start: 20071023, end: 20071109
  4. VELCADE [Suspect]
     Indication: MULTIPLE MYELOMA
     Dosage: 2.20 MG, UNK
     Route: 042
     Dates: start: 20071023, end: 20071102

REACTIONS (2)
  - VASCULAR PURPURA [None]
  - DYSPNOEA [None]
